FAERS Safety Report 22012752 (Version 2)
Quarter: 2023Q2

REPORT INFORMATION
  Report Type: Spontaneous
  Country: JP (occurrence: JP)
  Receive Date: 20230220
  Receipt Date: 20230522
  Transmission Date: 20230721
  Serious: Yes (Other)
  Sender: FDA-Public Use
  Company Number: JP-ONO-2023JP004067

PATIENT

DRUGS (1)
  1. OPDIVO [Suspect]
     Active Substance: NIVOLUMAB
     Indication: Malignant neoplasm of unknown primary site
     Dosage: 240 MG, Q2W
     Route: 041

REACTIONS (3)
  - Pancreatic neuroendocrine tumour [Unknown]
  - Diarrhoea [Unknown]
  - Pyrexia [Unknown]
